FAERS Safety Report 5186856-6 (Version None)
Quarter: 2006Q4

REPORT INFORMATION
  Report Type: 
  Country: None (occurrence: None)
  Receive Date: 20061220
  Receipt Date: 20061030
  Transmission Date: 20070319
  Serious: No
  Sender: FDA-Public Use
  Company Number: US-AMGEN-KDL198707

PATIENT
  Sex: Female

DRUGS (2)
  1. ENBREL [Suspect]
     Indication: SYSTEMIC LUPUS ERYTHEMATOSUS
     Route: 058
     Dates: start: 20050515
  2. PLAQUENIL [Concomitant]
     Route: 048
     Dates: start: 20041201

REACTIONS (5)
  - ANTINUCLEAR ANTIBODY INCREASED [None]
  - CHILLS [None]
  - HEADACHE [None]
  - PYREXIA [None]
  - VOMITING [None]
